FAERS Safety Report 8992892 (Version 3)
Quarter: 2013Q1

REPORT INFORMATION
  Report Type: Spontaneous
  Country: US (occurrence: US)
  Receive Date: 20130102
  Receipt Date: 20130308
  Transmission Date: 20140127
  Serious: Yes (Other)
  Sender: FDA-Public Use
  Company Number: US-BAYER-2012-136536

PATIENT
  Age: 32 Year
  Sex: Female

DRUGS (1)
  1. MIRENA [Suspect]
     Indication: CONTRACEPTION
     Dosage: 20 MCG/24HR, CONT
     Route: 015
     Dates: start: 200610

REACTIONS (7)
  - Device dislocation [None]
  - Genital haemorrhage [None]
  - Osteomyelitis [None]
  - Abdominal pain lower [None]
  - Device misuse [None]
  - Immunodeficiency [None]
  - Vaginal discharge [None]
